FAERS Safety Report 9830763 (Version 1)
Quarter: 2014Q1

REPORT INFORMATION
  Report Type: Spontaneous
  Country: TW (occurrence: TW)
  Receive Date: 20140120
  Receipt Date: 20140120
  Transmission Date: 20141002
  Serious: No
  Sender: FDA-Public Use
  Company Number: TW-ABBVIE-14P-153-1191785-00

PATIENT
  Sex: Male

DRUGS (5)
  1. KLARICID [Suspect]
     Indication: HELICOBACTER INFECTION
     Dates: start: 20131228, end: 20140103
  2. AMOXICILLIN [Suspect]
     Indication: DUODENAL ULCER
     Dates: start: 20131228
  3. AMOXICILLIN [Suspect]
     Indication: DUODENAL ULCER
  4. ANTACIDS [Suspect]
     Indication: DUODENAL ULCER
     Dates: start: 20131228
  5. ANTACIDS [Suspect]
     Indication: DUODENAL ULCER

REACTIONS (5)
  - Mouth ulceration [Unknown]
  - Amylase increased [Unknown]
  - Aspartate aminotransferase increased [Unknown]
  - Alanine aminotransferase increased [Unknown]
  - Blood creatinine increased [Unknown]
